FAERS Safety Report 6129496-4 (Version None)
Quarter: 2009Q1

REPORT INFORMATION
  Report Type: 
  Country: None (occurrence: None)
  Receive Date: 20090323
  Receipt Date: 20090323
  Transmission Date: 20090719
  Serious: Yes (Hospitalization, Other)
  Sender: FDA-Public Use
  Company Number: None

PATIENT
  Age: 24 Year
  Sex: Female
  Weight: 54.4316 kg

DRUGS (3)
  1. YAZ [Suspect]
     Indication: ACNE
     Dosage: 3MG/0.02MG 1 TABLET/DAY PO
     Route: 048
     Dates: start: 20090301, end: 20090313
  2. YAZ [Suspect]
     Indication: CONTRACEPTION
     Dosage: 3MG/0.02MG 1 TABLET/DAY PO
     Route: 048
     Dates: start: 20090301, end: 20090313
  3. YAZ [Suspect]
     Indication: PREMENSTRUAL SYNDROME
     Dosage: 3MG/0.02MG 1 TABLET/DAY PO
     Route: 048
     Dates: start: 20090301, end: 20090313

REACTIONS (12)
  - ANGER [None]
  - ANXIETY [None]
  - CHEST PAIN [None]
  - DEPRESSION [None]
  - DYSPNOEA [None]
  - FATIGUE [None]
  - IRRITABILITY [None]
  - LOSS OF LIBIDO [None]
  - MOOD ALTERED [None]
  - NAUSEA [None]
  - PALPITATIONS [None]
  - SUICIDAL IDEATION [None]
